FAERS Safety Report 22237821 (Version 1)
Quarter: 2023Q2

REPORT INFORMATION
  Report Type: Spontaneous
  Country: US (occurrence: US)
  Receive Date: 20230421
  Receipt Date: 20230421
  Transmission Date: 20230722
  Serious: No
  Sender: FDA-Public Use
  Company Number: US-SA-SAC20230420000254

PATIENT
  Sex: Female

DRUGS (1)
  1. DUPIXENT [Suspect]
     Active Substance: DUPILUMAB
     Indication: Dermatitis atopic
     Dosage: 300 MG, QOW
     Route: 058
     Dates: start: 20220216

REACTIONS (5)
  - Urinary tract infection [Recovered/Resolved]
  - Fluid intake reduced [Recovered/Resolved]
  - Asthma [Unknown]
  - Sneezing [Recovering/Resolving]
  - Eye pruritus [Recovering/Resolving]
